FAERS Safety Report 25853878 (Version 2)
Quarter: 2025Q4

REPORT INFORMATION
  Report Type: Spontaneous
  Country: US (occurrence: US)
  Receive Date: 20250926
  Receipt Date: 20251008
  Transmission Date: 20260118
  Serious: No
  Sender: MALLINCKRODT
  Company Number: US-MALLINCKRODT-MNK202506031

PATIENT
  Sex: Female

DRUGS (1)
  1. CORTICOTROPIN [Suspect]
     Active Substance: CORTICOTROPIN
     Indication: Cutaneous sarcoidosis
     Dosage: 80 UNITS
     Route: 058
     Dates: start: 202410

REACTIONS (5)
  - Sluggishness [Unknown]
  - Increased appetite [Unknown]
  - Blood glucose increased [Unknown]
  - Cushingoid [Unknown]
  - Weight increased [Unknown]
